FAERS Safety Report 5509541-7 (Version None)
Quarter: 2007Q4

REPORT INFORMATION
  Report Type: 
  Country: None (occurrence: None)
  Receive Date: 20071107
  Receipt Date: 20071101
  Transmission Date: 20080405
  Serious: Yes (Life-Threatening)
  Sender: FDA-Public Use
  Company Number: GB-PFIZER INC-2007092817

PATIENT
  Age: 66 Year
  Sex: Male
  Weight: 60 kg

DRUGS (4)
  1. FLUCONAZOLE [Suspect]
     Dosage: DAILY DOSE:200MG
     Route: 042
  2. ALLOPURINOL [Concomitant]
     Indication: BLOOD URIC ACID INCREASED
     Route: 048
     Dates: start: 20070922, end: 20071001
  3. RANITIDINE [Concomitant]
     Dosage: DAILY DOSE:50MG
     Route: 042
     Dates: start: 20070922
  4. TAZOCIN [Concomitant]
     Indication: PROPHYLAXIS
     Dosage: DAILY DOSE:4.5
     Route: 042
     Dates: start: 20070922

REACTIONS (1)
  - BLOOD PRESSURE DECREASED [None]
